FAERS Safety Report 8514912-0 (Version None)
Quarter: 2012Q3

REPORT INFORMATION
  Report Type: 
  Country: None (occurrence: None)
  Receive Date: 20120711
  Receipt Date: 20120711
  Transmission Date: 20120928
  Serious: Yes (Life-Threatening)
  Sender: FDA-Public Use
  Company Number: None

PATIENT
  Sex: Male
  Weight: 107 kg

DRUGS (3)
  1. RIBASPHERE [Suspect]
     Dosage: 600MG BID PO
     Route: 048
     Dates: start: 20120510
  2. RIBASPHERE [Suspect]
  3. PEGASYS [Suspect]
     Dosage: 180 MCG WEEKLY SUB-Q
     Route: 058
     Dates: start: 20120510

REACTIONS (4)
  - CONDITION AGGRAVATED [None]
  - SUICIDAL IDEATION [None]
  - DEPRESSION [None]
  - TREATMENT NONCOMPLIANCE [None]
